FAERS Safety Report 4678433-8 (Version None)
Quarter: 2005Q1

REPORT INFORMATION
  Report Type: 
  Country: None (occurrence: None)
  Receive Date: 20041123
  Receipt Date: 20041123
  Transmission Date: 20050727
  Serious: No
  Sender: FDA-Public Use
  Company Number: None

PATIENT
  Age: 79 Year
  Sex: Female
  Weight: 35.8342 kg

DRUGS (2)
  1. REMERON SOLTAB [Suspect]
     Indication: ANXIETY
     Dosage: 15 MG Q HS
  2. REMERON SOLTAB [Suspect]
     Indication: DYSTHYMIC DISORDER
     Dosage: 15 MG Q HS

REACTIONS (2)
  - DYSPHAGIA [None]
  - PHARMACEUTICAL PRODUCT COMPLAINT [None]
